FAERS Safety Report 6805026-6 (Version None)
Quarter: 2010Q2

REPORT INFORMATION
  Report Type: 
  Country: None (occurrence: None)
  Receive Date: 20100628
  Receipt Date: 20070730
  Transmission Date: 20101027
  Serious: No
  Sender: FDA-Public Use
  Company Number: US-PFIZER INC-2007064839

PATIENT
  Age: 72 Year
  Sex: Female
  Weight: 45 kg

DRUGS (12)
  1. CADUET [Suspect]
     Indication: HYPERTENSION
     Dosage: 20MG/5MG
     Dates: start: 20070401
  2. CADUET [Suspect]
     Indication: BLOOD CHOLESTEROL
  3. GLYBURIDE [Concomitant]
  4. ZETIA [Concomitant]
  5. METFORMIN HCL [Concomitant]
  6. TOPROL-XL [Concomitant]
  7. NEXIUM [Concomitant]
  8. EVISTA [Concomitant]
  9. LISINOPRIL [Concomitant]
  10. FAMOTIDINE [Concomitant]
  11. LIPITOR [Concomitant]
  12. NORVASC [Concomitant]

REACTIONS (3)
  - BLOOD IRON DECREASED [None]
  - BLOOD SODIUM DECREASED [None]
  - FATIGUE [None]
